FAERS Safety Report 5410016-4 (Version None)
Quarter: 2007Q3

REPORT INFORMATION
  Report Type: 
  Country: None (occurrence: None)
  Receive Date: 20070809
  Receipt Date: 20070803
  Transmission Date: 20080115
  Serious: Yes (Hospitalization)
  Sender: FDA-Public Use
  Company Number: NL-ABBOTT-04P-114-0278088-00

PATIENT
  Sex: Male
  Weight: 76 kg

DRUGS (7)
  1. HUMIRA [Suspect]
     Indication: RHEUMATOID ARTHRITIS
     Dosage: 40 MG
     Route: 058
     Dates: start: 20040720, end: 20041013
  2. HUMIRA [Suspect]
     Dates: start: 20041108
  3. SULFASALAZINE [Concomitant]
     Indication: RHEUMATOID ARTHRITIS
     Dates: start: 19980625
  4. ARTHROTEC [Concomitant]
     Indication: RHEUMATOID ARTHRITIS
     Dates: start: 19970319
  5. OMEPRAZOLE [Concomitant]
     Indication: RHEUMATOID ARTHRITIS
     Dates: start: 20030826
  6. LAMOTRIGINE [Concomitant]
     Indication: EPILEPSY
     Dates: start: 19951201
  7. COMMERCIAL HUMIRA [Concomitant]
     Indication: RHEUMATOID ARTHRITIS
     Dosage: 40 MG
     Route: 058
     Dates: start: 20040203

REACTIONS (1)
  - DYSPNOEA [None]
